FAERS Safety Report 23321749 (Version 1)
Quarter: 2023Q4

REPORT INFORMATION
  Report Type: Report from Study
  Country: CA (occurrence: CA)
  Receive Date: 20231220
  Receipt Date: 20231220
  Transmission Date: 20240110
  Serious: Yes (Other)
  Sender: FDA-Public Use
  Company Number: CA-002147023-NVSC2023CA232432

PATIENT
  Sex: Male

DRUGS (2)
  1. LEQVIO [Suspect]
     Active Substance: INCLISIRAN SODIUM
     Indication: Arteriosclerosis
     Dosage: 284 MG, OTHER (FIRST SHOT) (AT WEEK 0) 3 THEN Q 6 MONTHS
     Route: 058
     Dates: start: 20230821, end: 20230821
  2. LEQVIO [Suspect]
     Active Substance: INCLISIRAN SODIUM
     Indication: Hypercholesterolaemia

REACTIONS (6)
  - Dyspnoea [Unknown]
  - Sexual dysfunction [Unknown]
  - Adverse drug reaction [Unknown]
  - Asthma [Unknown]
  - Pulmonary pain [Unknown]
  - Feeling abnormal [Unknown]

NARRATIVE: CASE EVENT DATE: 20231124
